FAERS Safety Report 6141223-3 (Version None)
Quarter: 2009Q2

REPORT INFORMATION
  Report Type: 
  Country: None (occurrence: None)
  Receive Date: 20090402
  Receipt Date: 20090326
  Transmission Date: 20091009
  Serious: Yes (Other)
  Sender: FDA-Public Use
  Company Number: FR-ELI_LILLY_AND_COMPANY-FR200807005946

PATIENT
  Age: 60 Year
  Sex: Female

DRUGS (7)
  1. BYETTA [Suspect]
     Dosage: 5 UG, 2/D
     Route: 058
     Dates: start: 20080630
  2. DIAMICRON [Concomitant]
     Dosage: UNK, UNKNOWN
     Route: 048
  3. KARDEGIC [Concomitant]
     Dosage: UNK, UNKNOWN
     Route: 048
  4. APROVEL [Concomitant]
     Dosage: UNK, UNKNOWN
     Route: 048
  5. ELISOR [Concomitant]
     Dosage: UNK, UNKNOWN
     Route: 048
  6. NEXIUM [Concomitant]
     Dosage: UNK, UNKNOWN
     Route: 048
  7. SYMBICORT [Concomitant]
     Dosage: UNK, UNKNOWN
     Route: 065

REACTIONS (3)
  - CHOLESTATIC LIVER INJURY [None]
  - DYSPEPSIA [None]
  - NAUSEA [None]
